FAERS Safety Report 7310632-9 (Version None)
Quarter: 2011Q1

REPORT INFORMATION
  Report Type: 
  Country: None (occurrence: None)
  Receive Date: 20110224
  Receipt Date: 20100524
  Transmission Date: 20110831
  Serious: No
  Sender: FDA-Public Use
  Company Number: US-BRISTOL-MYERS SQUIBB COMPANY-15121494

PATIENT
  Age: 72 Year
  Sex: Female

DRUGS (2)
  1. GLUCOPHAGE [Suspect]
     Dates: start: 20100101
  2. MULTAQ [Suspect]
     Indication: ATRIAL FIBRILLATION
     Route: 048
     Dates: start: 20100101

REACTIONS (3)
  - NAUSEA [None]
  - ALOPECIA [None]
  - VOMITING [None]
